FAERS Safety Report 7867985-2 (Version None)
Quarter: 2011Q4

REPORT INFORMATION
  Report Type: 
  Country: None (occurrence: None)
  Receive Date: 20111028
  Receipt Date: 20111025
  Transmission Date: 20120403
  Serious: Yes (Other)
  Sender: FDA-Public Use
  Company Number: US-AMGEN-QUU405988

PATIENT
  Sex: Female

DRUGS (29)
  1. ASPIRIN [Concomitant]
  2. PREDNISONE [Concomitant]
  3. PRILOSEC [Concomitant]
  4. CEPHALEXIN [Concomitant]
  5. CORTICOSTEROID NOS [Concomitant]
     Indication: IDIOPATHIC THROMBOCYTOPENIC PURPURA
     Dosage: UNK UNK, UNK
  6. CRESTOR [Concomitant]
  7. ZETIA [Concomitant]
  8. GLUCOPHAGE [Concomitant]
  9. RITALIN [Concomitant]
  10. NEXIUM [Concomitant]
  11. FOLIC ACID [Concomitant]
  12. LISINOPRIL [Concomitant]
  13. LIPITOR [Concomitant]
  14. HYZAAR                             /01284801/ [Concomitant]
  15. AVAPRO [Concomitant]
  16. METFORMIN [Concomitant]
  17. NORVASC [Concomitant]
  18. LOPRESOR                           /00376902/ [Concomitant]
  19. CALCIUM W/VITAMIN D                /00188401/ [Concomitant]
  20. NPLATE [Suspect]
     Indication: IDIOPATHIC THROMBOCYTOPENIC PURPURA
     Dosage: UNK UNK, UNK
     Dates: start: 20090428
  21. WELLBUTRIN [Concomitant]
  22. LEXAPRO [Concomitant]
  23. DANAZOL [Concomitant]
  24. IMMUNE GLOBULIN NOS [Concomitant]
     Indication: IDIOPATHIC THROMBOCYTOPENIC PURPURA
     Dosage: UNK UNK, UNK
     Route: 042
     Dates: start: 20080801, end: 20090829
  25. ACIDOPHILUS [Concomitant]
  26. COUMADIN [Concomitant]
  27. TOPROL-XL [Concomitant]
  28. ACE                                /00008704/ [Concomitant]
  29. AMARYL [Concomitant]

REACTIONS (1)
  - BLADDER CANCER [None]
